FAERS Safety Report 10424174 (Version 1)
Quarter: 2014Q3

REPORT INFORMATION
  Report Type: Spontaneous
  Country: BE (occurrence: BE)
  Receive Date: 20140902
  Receipt Date: 20140902
  Transmission Date: 20150326
  Serious: Yes (Other)
  Sender: FDA-Public Use
  Company Number: BE-ABBVIE-14P-013-1276781-00

PATIENT
  Age: 49 Year
  Sex: Male

DRUGS (1)
  1. DEPAKINE CHRONO [Suspect]
     Active Substance: VALPROATE SODIUM
     Indication: BIPOLAR DISORDER
     Dosage: MODIFIED-RELEASE TABLET
     Route: 048
     Dates: end: 20140821

REACTIONS (3)
  - Dementia [Unknown]
  - Cerebral atrophy [Unknown]
  - Off label use [Unknown]
